FAERS Safety Report 15623151 (Version 2)
Quarter: 2019Q3

REPORT INFORMATION
  Report Type: Spontaneous
  Country: CA (occurrence: CA)
  Receive Date: 20181115
  Receipt Date: 20190731
  Transmission Date: 20191004
  Serious: Yes (Death, Hospitalization, Other)
  Sender: FDA-Public Use
  Company Number: CA-TEVA-2018-CA-974273

PATIENT
  Age: 75 Year
  Sex: Male

DRUGS (5)
  1. PREDNISONE. [Suspect]
     Active Substance: PREDNISONE
     Indication: IMMUNOSUPPRESSION
     Route: 065
  2. THYMOGLOBULIN [Suspect]
     Active Substance: LAPINE T-LYMPHOCYTE IMMUNE GLOBULIN
     Indication: IMMUNOSUPPRESSION
     Dosage: AT A DOSE OF 4-6 MG/KG
     Route: 065
  3. TACROLIMUS. [Suspect]
     Active Substance: TACROLIMUS
     Indication: IMMUNOSUPPRESSION
     Route: 065
  4. MYCOPHENOLATE MOFETIL. [Suspect]
     Active Substance: MYCOPHENOLATE MOFETIL
     Indication: IMMUNOSUPPRESSION
     Route: 065
  5. BACILLUS CAMLETTE-GUERIN (MYCOBACTERIUM BOVIS TICE STRAIN) [Suspect]
     Active Substance: BACILLUS CALMETTE-GUERIN SUBSTRAIN TICE LIVE ANTIGEN
     Indication: TRANSITIONAL CELL CARCINOMA
     Dosage: SIX WEEKS INDUCTION COURSE WITHOUT MAINTENANCE DOSES
     Route: 050
     Dates: start: 201011

REACTIONS (7)
  - Mycobacterial infection [Fatal]
  - Sepsis [Fatal]
  - Weight decreased [Fatal]
  - Renal transplant failure [Fatal]
  - Renal failure [Fatal]
  - Disseminated Bacillus Calmette-Guerin infection [Fatal]
  - Prostatitis [Fatal]

NARRATIVE: CASE EVENT DATE: 2011
